FAERS Safety Report 21628961 (Version 5)
Quarter: 2023Q1

REPORT INFORMATION
  Report Type: Spontaneous
  Country: US (occurrence: US)
  Receive Date: 20221122
  Receipt Date: 20230228
  Transmission Date: 20230417
  Serious: Yes (Life-Threatening, Hospitalization, Other)
  Sender: FDA-Public Use
  Company Number: US-SA-SAC20221116001370

PATIENT
  Age: 66 Year
  Sex: Male

DRUGS (47)
  1. TAXOTERE [Suspect]
     Active Substance: DOCETAXEL
     Indication: Non-small cell lung cancer metastatic
     Dosage: DAY 5 ON EVERY 21 DAYS
     Route: 042
     Dates: start: 20221021
  2. TAXOTERE [Suspect]
     Active Substance: DOCETAXEL
     Dosage: 109 UNK
     Route: 042
     Dates: start: 20230113
  3. FUROSEMIDE [Suspect]
     Active Substance: FUROSEMIDE
     Indication: Hypervolaemia
     Dosage: 40 MG, QD
     Route: 048
     Dates: start: 20230111
  4. OBINUTUZUMAB [Suspect]
     Active Substance: OBINUTUZUMAB
     Indication: Non-small cell lung cancer metastatic
     Dosage: ON DAYS -13 AND -12
     Route: 042
     Dates: start: 20221004
  5. NAPTUMOMAB ESTAFENATOX [Suspect]
     Active Substance: NAPTUMOMAB ESTAFENATOX
     Dosage: 893 MG, Q3W
     Route: 042
     Dates: start: 20221017
  6. NAPTUMOMAB ESTAFENATOX [Suspect]
     Active Substance: NAPTUMOMAB ESTAFENATOX
     Dosage: 780 MG
     Route: 042
     Dates: start: 20230109
  7. ESCITALOPRAM [Concomitant]
     Active Substance: ESCITALOPRAM OXALATE
     Indication: Anxiety
     Dosage: 20 MG, QD
     Route: 048
     Dates: start: 200506
  8. ESCITALOPRAM [Concomitant]
     Active Substance: ESCITALOPRAM OXALATE
     Indication: Depression
  9. SENNA-S [DOCUSATE SODIUM;SENNOSIDE A+B] [Concomitant]
     Indication: Constipation
     Dosage: 2 DF, BID
     Route: 048
     Dates: start: 20220830
  10. TRAMADOL [Concomitant]
     Active Substance: TRAMADOL
     Indication: Pathological fracture
     Dosage: 100 MG, QID
     Dates: start: 20220816
  11. TRAMADOL [Concomitant]
     Active Substance: TRAMADOL
     Dosage: EXTENDED RELEASE
     Dates: start: 20220816
  12. TRAMADOL [Concomitant]
     Active Substance: TRAMADOL
  13. XARELTO [Concomitant]
     Active Substance: RIVAROXABAN
     Indication: Hypertension
     Dosage: 20 MG, QD
     Dates: start: 20220920
  14. XARELTO [Concomitant]
     Active Substance: RIVAROXABAN
     Dosage: 20MG
  15. ALBUTEROL SULFATE [Concomitant]
     Active Substance: ALBUTEROL SULFATE
     Indication: Chronic obstructive pulmonary disease
     Dosage: 90 UG, PRN
     Dates: start: 201605
  16. ALBUTEROL SULFATE [Concomitant]
     Active Substance: ALBUTEROL SULFATE
     Dosage: UNK UNK, PRN
  17. OMEPRAZOLE [Concomitant]
     Active Substance: OMEPRAZOLE
     Indication: Gastrooesophageal reflux disease
     Dosage: ONCE DAILY AS NEEDED
     Route: 048
     Dates: start: 200504
  18. TYLENOL [Concomitant]
     Active Substance: ACETAMINOPHEN
     Indication: Pathological fracture
     Dosage: 650 MG, 6ID
     Route: 048
     Dates: start: 20220816
  19. TYLENOL [Concomitant]
     Active Substance: ACETAMINOPHEN
     Dosage: 650MG
  20. LACTULOSE [Concomitant]
     Active Substance: LACTULOSE
     Indication: Constipation
     Dosage: STRENGTH: 10 G/15 ML
     Route: 048
     Dates: start: 20221022
  21. DEXAMETHASONE [Concomitant]
     Active Substance: DEXAMETHASONE
     Indication: Prophylaxis
     Dosage: 8 MG, BID
     Route: 048
     Dates: start: 20221022
  22. DEXAMETHASONE [Concomitant]
     Active Substance: DEXAMETHASONE
     Indication: Nausea
  23. HYCODAN [HOMATROPINE METHYLBROMIDE;HYDROCODONE BITARTRATE] [Concomitant]
     Indication: Cough
     Dosage: EVERY 4-6 HOURS AS NEEDED
     Route: 048
     Dates: start: 20221013
  24. BENZONATATE [Concomitant]
     Active Substance: BENZONATATE
     Indication: Cough
     Dosage: THREE TIMES DAILY AS NEEDED
     Route: 048
     Dates: start: 20221025
  25. CEFPODOXIME [Concomitant]
     Active Substance: CEFPODOXIME
     Indication: Cough
     Dosage: 200 MG, BID
     Route: 048
     Dates: start: 20221025, end: 20221103
  26. SENNOSIDES [Concomitant]
     Active Substance: SENNOSIDES
     Indication: Constipation
     Dosage: SENNOSIDE 8.5 MG/DOCUSATE 50 MG. 2 DF QD
  27. DOCUSATE [Concomitant]
     Active Substance: DOCUSATE
     Indication: Constipation
  28. DOCUSATE [Concomitant]
     Active Substance: DOCUSATE
  29. RIVAROXABAN [Concomitant]
     Active Substance: RIVAROXABAN
     Dosage: 20MG
  30. RIVAROXABAN [Concomitant]
     Active Substance: RIVAROXABAN
     Dosage: 20MG
  31. ACETAMINOPHEN [Concomitant]
     Active Substance: ACETAMINOPHEN
     Dosage: 650MG
  32. ACETAMINOPHEN [Concomitant]
     Active Substance: ACETAMINOPHEN
     Dosage: 650MG
  33. HOMATROPINE METHYLBROMIDE [Concomitant]
     Active Substance: HOMATROPINE METHYLBROMIDE
  34. HYDROCODONE BITARTRATE [Concomitant]
     Active Substance: HYDROCODONE BITARTRATE
     Indication: Cough
  35. TRIMETHOPRIM [Concomitant]
     Active Substance: TRIMETHOPRIM
  36. FUROSEMIDE\POTASSIUM CHLORIDE [Concomitant]
     Active Substance: FUROSEMIDE\POTASSIUM CHLORIDE
     Dosage: 20MG
  37. GUAIFENESIN [Concomitant]
     Active Substance: GUAIFENESIN
  38. FLUTICASONE [Concomitant]
     Active Substance: FLUTICASONE
     Indication: Chronic obstructive pulmonary disease
     Dosage: 100 UG
     Dates: start: 20221109
  39. UMECLIDINIUM [Concomitant]
     Active Substance: UMECLIDINIUM
     Indication: Chronic obstructive pulmonary disease
     Dosage: 62.5 UG
     Dates: start: 20221109
  40. VILANTEROL [Concomitant]
     Active Substance: VILANTEROL
     Indication: Chronic obstructive pulmonary disease
     Dosage: 25 UG
     Dates: start: 20221109
  41. OXYCODONE [Concomitant]
     Active Substance: OXYCODONE
     Indication: Pathological fracture
     Dosage: 10 MG, PRN
     Route: 048
     Dates: start: 20221222
  42. OXYCODONE [Concomitant]
     Active Substance: OXYCODONE
     Indication: Pain
  43. MELATONIN [Concomitant]
     Active Substance: MELATONIN
     Indication: Insomnia
     Dosage: 5 MG, QD
     Route: 048
     Dates: start: 20221109
  44. LUBIPROSTONE [Concomitant]
     Active Substance: LUBIPROSTONE
     Indication: Constipation
     Dosage: 24 UG, BID
     Route: 048
     Dates: start: 20221219
  45. COMPAZINE [Concomitant]
     Active Substance: PROCHLORPERAZINE MALEATE
     Indication: Nausea
     Dosage: 10 MG, Q6H
     Route: 048
     Dates: start: 20221220
  46. PROCHLORPERAZINE [Concomitant]
     Active Substance: PROCHLORPERAZINE
     Indication: Nausea
     Dosage: 10MG
  47. NEULASTA [Concomitant]
     Active Substance: PEGFILGRASTIM
     Indication: Neutropenia
     Dosage: 6 MG, Q3W
     Dates: start: 20221223

REACTIONS (19)
  - Respiratory failure [Recovered/Resolved]
  - Haemophilus infection [Not Recovered/Not Resolved]
  - Pneumonia [Not Recovered/Not Resolved]
  - Hypervolaemia [Not Recovered/Not Resolved]
  - Sinus tachycardia [Unknown]
  - Sepsis [Unknown]
  - Asthenia [Unknown]
  - Dyspnoea [Unknown]
  - Chest discomfort [Unknown]
  - Hypotension [Unknown]
  - Acute respiratory failure [Unknown]
  - Malaise [Unknown]
  - Rhonchi [Unknown]
  - Pallor [Unknown]
  - Lung opacity [Unknown]
  - Atelectasis [Unknown]
  - Pleural thickening [Unknown]
  - Tissue infiltration [Unknown]
  - Pleural effusion [Unknown]

NARRATIVE: CASE EVENT DATE: 20230121
